FAERS Safety Report 4707843-5 (Version None)
Quarter: 2005Q3

REPORT INFORMATION
  Report Type: 
  Country: None (occurrence: None)
  Receive Date: 20050705
  Receipt Date: 20050705
  Transmission Date: 20060218
  Serious: Yes (Life-Threatening, Hospitalization)
  Sender: FDA-Public Use
  Company Number: None

PATIENT
  Age: 8 Year
  Sex: Male
  Weight: 29.4838 kg

DRUGS (1)
  1. ASPIRIN [Suspect]

REACTIONS (2)
  - HYPERSENSITIVITY [None]
  - MEDICATION ERROR [None]
